FAERS Safety Report 20307603 (Version 3)
Quarter: 2022Q4

REPORT INFORMATION
  Report Type: Other
  Country: US (occurrence: None)
  Receive Date: 20220107
  Receipt Date: 20221212
  Transmission Date: 20230113
  Serious: No
  Sender: FDA-Public Use
  Company Number: US-ROCHE-2988926

PATIENT
  Age: 27 Year
  Sex: Female
  Weight: 89.438 kg

DRUGS (1)
  1. OCREVUS [Suspect]
     Active Substance: OCRELIZUMAB
     Indication: Relapsing-remitting multiple sclerosis
     Dosage: NO
     Route: 042
     Dates: start: 201907, end: 202103

REACTIONS (4)
  - Maternal exposure before pregnancy [Unknown]
  - Upper respiratory tract infection [Not Recovered/Not Resolved]
  - Bronchitis [Recovered/Resolved with Sequelae]
  - Streptococcal infection [Unknown]

NARRATIVE: CASE EVENT DATE: 20210301
